FAERS Safety Report 7554093-3 (Version None)
Quarter: 2011Q2

REPORT INFORMATION
  Report Type: 
  Country: None (occurrence: None)
  Receive Date: 20110617
  Receipt Date: 20110609
  Transmission Date: 20111010
  Serious: Yes (Life-Threatening, Hospitalization, Other)
  Sender: FDA-Public Use
  Company Number: CH-MPIJNJ-2011-02461

PATIENT

DRUGS (7)
  1. CYCLOPHOSPHAMIDE [Suspect]
     Dosage: UNK
     Dates: start: 20080301
  2. MITOXANTRONE HYDROCHLORIDE [Suspect]
     Indication: MULTIPLE MYELOMA
     Dosage: UNK
     Dates: start: 19990101
  3. VELCADE [Suspect]
     Indication: MULTIPLE MYELOMA
     Dosage: UNK
     Dates: start: 20100101
  4. CYCLOPHOSPHAMIDE [Suspect]
     Indication: MULTIPLE MYELOMA
     Dosage: UNK
     Dates: start: 20071101
  5. REVLIMID [Suspect]
     Dosage: UNK
     Dates: start: 20090101
  6. REVLIMID [Suspect]
     Indication: MULTIPLE MYELOMA
     Dosage: UNK
     Dates: start: 20060101
  7. AREDIA [Suspect]
     Indication: MULTIPLE MYELOMA
     Dosage: UNK
     Dates: start: 20060101

REACTIONS (2)
  - RENAL FAILURE [None]
  - CARDIOMYOPATHY [None]
